FAERS Safety Report 8788056 (Version 2)
Quarter: 2012Q4

REPORT INFORMATION
  Report Type: Report from Study
  Country: CA (occurrence: CA)
  Receive Date: 20120914
  Receipt Date: 20120924
  Transmission Date: 20130627
  Serious: Yes (Other)
  Sender: FDA-Public Use
  Company Number: CA-ROCHE-1118598

PATIENT
  Sex: Male
  Weight: 106.69 kg

DRUGS (2)
  1. AVASTIN [Suspect]
     Indication: COLORECTAL CANCER METASTATIC
     Route: 042
     Dates: start: 20120816
  2. LEVETIRACETAM [Concomitant]

REACTIONS (2)
  - Neoplasm [Not Recovered/Not Resolved]
  - Disease progression [Not Recovered/Not Resolved]
